FAERS Safety Report 9657080 (Version 3)
Quarter: 2014Q3

REPORT INFORMATION
  Report Type: Spontaneous
  Country: US (occurrence: US)
  Receive Date: 20131030
  Receipt Date: 20140824
  Transmission Date: 20150326
  Serious: Yes (Hospitalization)
  Sender: FDA-Public Use
  Company Number: US-009507513-1310USA013203

PATIENT
  Sex: Female

DRUGS (2)
  1. NUVARING [Suspect]
     Active Substance: ETHINYL ESTRADIOL\ETONOGESTREL
     Indication: CONTRACEPTION
     Dosage: UNK
     Route: 067
     Dates: start: 200805, end: 200808
  2. NUVARING [Suspect]
     Active Substance: ETHINYL ESTRADIOL\ETONOGESTREL
     Indication: HOT FLUSH

REACTIONS (7)
  - Thrombolysis [Unknown]
  - Off label use [Unknown]
  - Thrombectomy [Unknown]
  - Menorrhagia [Unknown]
  - Angioplasty [Unknown]
  - Deep vein thrombosis [Unknown]
  - Breast pain [Unknown]

NARRATIVE: CASE EVENT DATE: 200805
